FAERS Safety Report 11512396 (Version 1)
Quarter: 2015Q3

REPORT INFORMATION
  Report Type: Spontaneous
  Country: CH (occurrence: None)
  Receive Date: 20150914
  Receipt Date: 20150914
  Transmission Date: 20151125
  Serious: Yes (Hospitalization)
  Sender: FDA-Public Use
  Company Number: 2015CH0512

PATIENT
  Age: 70 Year
  Sex: Female

DRUGS (4)
  1. LODOTRA (PREDNISONE) (PREDNISONE) [Concomitant]
  2. KINERET [Suspect]
     Active Substance: ANAKINRA
     Indication: CHONDROCALCINOSIS PYROPHOSPHATE
     Route: 058
     Dates: start: 20150716
  3. NSAID [Concomitant]
     Active Substance: UNSPECIFIED INGREDIENT
  4. LODINK (ETODALAC) (ETODALAC) [Concomitant]

REACTIONS (1)
  - Colitis [None]

NARRATIVE: CASE EVENT DATE: 20150824
